FAERS Safety Report 18745461 (Version 5)
Quarter: 2021Q1

REPORT INFORMATION
  Report Type: Report from Study
  Country: DE (occurrence: DE)
  Receive Date: 20210115
  Receipt Date: 20210326
  Transmission Date: 20210419
  Serious: Yes (Hospitalization, Other)
  Sender: FDA-Public Use
  Company Number: DE-BRISTOL-MYERS SQUIBB COMPANY-BMS-2021-001637

PATIENT
  Age: 82 Year
  Sex: Male

DRUGS (1)
  1. NIVOLUMAB [Suspect]
     Active Substance: NIVOLUMAB
     Indication: MALIGNANT MELANOMA
     Dosage: 480 MILLIGRAM, Q4WK
     Route: 042
     Dates: start: 20191121

REACTIONS (7)
  - Malignant neoplasm progression [Unknown]
  - Encephalopathy [Unknown]
  - Retrograde amnesia [Unknown]
  - Intracranial tumour haemorrhage [Unknown]
  - Syncope [Recovering/Resolving]
  - Ventricular tachycardia [Unknown]
  - Atrioventricular dissociation [Unknown]

NARRATIVE: CASE EVENT DATE: 20201228
